FAERS Safety Report 8855073 (Version 3)
Quarter: 2012Q4

REPORT INFORMATION
  Report Type: 
  Country: US (occurrence: US)
  Receive Date: 20121023
  Receipt Date: 20121109
  Transmission Date: 20130627
  Serious: Yes (Hospitalization, Other)
  Sender: FDA-Public Use
  Company Number: US-009507513-1210USA005554

PATIENT
  Sex: Male

DRUGS (2)
  1. PEGINTRON [Suspect]
     Indication: HEPATITIS C
     Dosage: UNK
     Route: 058
     Dates: start: 20121005, end: 20121012
  2. RIBAVIRIN [Suspect]
     Indication: HEPATITIS C
     Dosage: UNK
     Route: 048
     Dates: start: 20121005, end: 20121015

REACTIONS (21)
  - Injection site pain [Unknown]
  - Hypersensitivity [Unknown]
  - Injection site erythema [Unknown]
  - White blood cell count decreased [Unknown]
  - Platelet count decreased [Unknown]
  - Urticaria [Unknown]
  - Arthralgia [Unknown]
  - Myalgia [Unknown]
  - Pruritus [Unknown]
  - Asthenia [Unknown]
  - Balance disorder [Unknown]
  - Influenza like illness [Unknown]
  - Nausea [Unknown]
  - Fatigue [Unknown]
  - Influenza like illness [Unknown]
  - Bone pain [Unknown]
  - Injection site reaction [Unknown]
  - Pain [Unknown]
  - Infection [Unknown]
  - Urticaria [Unknown]
  - Myalgia [Unknown]
